FAERS Safety Report 15473750 (Version 1)
Quarter: 2018Q4

REPORT INFORMATION
  Report Type: Spontaneous
  Country: GB (occurrence: GB)
  Receive Date: 20181008
  Receipt Date: 20181008
  Transmission Date: 20190205
  Serious: Yes (Disabling)
  Sender: FDA-Public Use
  Company Number: GB-PFIZER INC-2018398822

PATIENT
  Age: 81 Year
  Sex: Male
  Weight: 77 kg

DRUGS (10)
  1. ZAPAIN [Concomitant]
     Active Substance: ACETAMINOPHEN\CODEINE PHOSPHATE
     Dosage: TAKE 1 OR 2 4 TIMES/DAY.
     Dates: start: 20180619, end: 20180703
  2. FENBID [Concomitant]
     Active Substance: IBUPROFEN
     Dosage: UP TO THREE TIMES A DAY.
     Dates: start: 20180905
  3. GLYCERYL TRINITRATE [Concomitant]
     Active Substance: NITROGLYCERIN
     Dosage: SPRAY ONE OR TWO DOSES UNDER TONGUE.
     Route: 060
     Dates: start: 20180613, end: 20180711
  4. LUMIGAN [Concomitant]
     Active Substance: BIMATOPROST
     Dosage: TO BE USED IN THE AFFECTED EYE(S).
     Dates: start: 20180131
  5. FELODIPINE. [Concomitant]
     Active Substance: FELODIPINE
     Dosage: 1 DF, 1X/DAY
     Dates: start: 20180131
  6. ATORVASTATIN [Concomitant]
     Active Substance: ATORVASTATIN
     Dosage: 1 DF, 1X/DAY
     Dates: start: 20180425
  7. PIZOTIFEN [Concomitant]
     Active Substance: PIZOTYLINE
     Dosage: 1 DF, 1X/DAY
     Dates: start: 20180824
  8. CETIRIZINE [Concomitant]
     Active Substance: CETIRIZINE HYDROCHLORIDE
     Dosage: 1 DF, 1X/DAY
     Dates: start: 20180131
  9. PREGABALIN. [Suspect]
     Active Substance: PREGABALIN
     Dosage: AT NIGHT.
     Dates: start: 20180824
  10. PARACETAMOL [Concomitant]
     Active Substance: ACETAMINOPHEN
     Dosage: TO BE TAKEN EVERY 4-6 HOURS UP TO 4 TIMES.
     Dates: start: 20180131

REACTIONS (1)
  - Rash erythematous [Recovered/Resolved]
